FAERS Safety Report 9567216 (Version 1)
Quarter: 2013Q3

REPORT INFORMATION
  Report Type: Spontaneous
  Country: US (occurrence: US)
  Receive Date: 20130930
  Receipt Date: 20130930
  Transmission Date: 20140515
  Serious: No
  Sender: FDA-Public Use
  Company Number: US-AMGEN-USASP2012062207

PATIENT
  Age: 65 Year
  Sex: Female
  Weight: 47.62 kg

DRUGS (7)
  1. ENBREL [Suspect]
     Indication: RHEUMATOID ARTHRITIS
     Dosage: 50 MG, QWK
     Route: 058
  2. METHOTREXATE [Concomitant]
     Dosage: 250 MG-10
  3. PREDNISOLONE [Concomitant]
     Dosage: 5 MG, UNK
  4. CALCIUM                            /00060701/ [Concomitant]
     Dosage: 1200 CHW
  5. VITAMIN D                          /00107901/ [Concomitant]
     Dosage: 1000 UNIT, UNK
  6. FOLIC ACID [Concomitant]
     Dosage: UNK
     Route: 048
  7. ALENDRONATE [Concomitant]
     Dosage: 5 MG, UNK
     Route: 048

REACTIONS (1)
  - Large intestine polyp [Unknown]
